FAERS Safety Report 6269584-5 (Version None)
Quarter: 2009Q3

REPORT INFORMATION
  Report Type: 
  Country: None (occurrence: None)
  Receive Date: 20090715
  Receipt Date: 20090630
  Transmission Date: 20100115
  Serious: Yes (Life-Threatening, Hospitalization, Other)
  Sender: FDA-Public Use
  Company Number: DE-GENENTECH-286712

PATIENT
  Sex: Male

DRUGS (4)
  1. MABTHERA [Suspect]
     Indication: CHRONIC LYMPHOCYTIC LEUKAEMIA
     Dosage: 1000 MG, UNK
     Route: 042
     Dates: start: 20090201
  2. BENDAMUSTINE [Suspect]
     Indication: CHRONIC LYMPHOCYTIC LEUKAEMIA
     Dosage: 180 MG, UNK
     Route: 065
     Dates: start: 20090201
  3. COTRIM [Suspect]
     Indication: PROPHYLAXIS
     Dosage: UNK
     Route: 048
     Dates: start: 20090317
  4. ALLOPURINOL [Suspect]
     Indication: PROPHYLAXIS
     Dosage: 300 MG, UNK
     Route: 048

REACTIONS (2)
  - MUCOSAL INFLAMMATION [None]
  - TOXIC EPIDERMAL NECROLYSIS [None]
